FAERS Safety Report 5147698-0 (Version None)
Quarter: 2006Q4

REPORT INFORMATION
  Report Type: 
  Country: None (occurrence: None)
  Receive Date: 20061110
  Receipt Date: 20061106
  Transmission Date: 20070319
  Serious: Yes (Other)
  Sender: FDA-Public Use
  Company Number: US-BAYER-200614571BCC

PATIENT
  Sex: Male

DRUGS (3)
  1. ASPIRIN TAB [Suspect]
     Indication: DRUG USE FOR UNKNOWN INDICATION
     Route: 048
  2. ASPIRIN TAB [Suspect]
     Route: 048
  3. PLAVIX [Concomitant]

REACTIONS (2)
  - POLLAKIURIA [None]
  - PROSTATIC DISORDER [None]
